FAERS Safety Report 8874638 (Version 1)
Quarter: 2012Q4

REPORT INFORMATION
  Report Type: 
  Country: US (occurrence: US)
  Receive Date: 20121023
  Receipt Date: 20121023
  Transmission Date: 20130627
  Serious: No
  Sender: FDA-Public Use
  Company Number: US-VERTEX PHARMACEUTICAL INC.-2012-023191

PATIENT
  Age: 59 Year
  Sex: Male
  Weight: 88 kg

DRUGS (4)
  1. INCIVEK [Suspect]
     Indication: HEPATITIS C
     Dosage: 750 mg, tid
     Route: 048
     Dates: start: 20120803
  2. PEGASYS [Suspect]
     Indication: HEPATITIS C
     Dosage: 180 ?g, qw
     Route: 058
     Dates: start: 20120803
  3. RIBAVIRIN [Suspect]
     Indication: HEPATITIS C
     Dosage: 600 mg, bid
     Route: 048
     Dates: start: 20120803
  4. RIBAVIRIN [Suspect]
     Dosage: 200 mg AM and 400 mg PM, qd
     Route: 048
     Dates: start: 20120830

REACTIONS (2)
  - Abdominal discomfort [Not Recovered/Not Resolved]
  - Blood count abnormal [Recovered/Resolved]
